FAERS Safety Report 7886253-6 (Version None)
Quarter: 2011Q4

REPORT INFORMATION
  Report Type: 
  Country: None (occurrence: None)
  Receive Date: 20111102
  Receipt Date: 20110629
  Transmission Date: 20120403
  Serious: No
  Sender: FDA-Public Use
  Company Number: US-AMGEN-USASP2011033257

PATIENT
  Age: 66 Year
  Sex: Female

DRUGS (1)
  1. ENBREL [Suspect]
     Indication: RHEUMATOID ARTHRITIS
     Dosage: 25 MG, QWK
     Dates: start: 20040101

REACTIONS (4)
  - PSYCHOMOTOR HYPERACTIVITY [None]
  - FATIGUE [None]
  - POOR QUALITY SLEEP [None]
  - ASTHENIA [None]
